FAERS Safety Report 16257619 (Version 2)
Quarter: 2019Q3

REPORT INFORMATION
  Report Type: Report from Study
  Country: BR (occurrence: BR)
  Receive Date: 20190430
  Receipt Date: 20190708
  Transmission Date: 20191004
  Serious: Yes (Other)
  Sender: FDA-Public Use
  Company Number: PHHY2014BR107254

PATIENT
  Sex: Male
  Weight: 72 kg

DRUGS (2)
  1. ALENIA (BUDESONIDE\FORMOTEROL FUMARATE) [Suspect]
     Active Substance: BUDESONIDE\FORMOTEROL FUMARATE
     Indication: BRONCHIECTASIS
     Dosage: 1 DF, Q6H
     Route: 065
  2. FORASEQ [Suspect]
     Active Substance: BUDESONIDE\FORMOTEROL FUMARATE
     Indication: BRONCHIECTASIS
     Dosage: 2 DF (2 CAPSULES), Q12H
     Route: 055
     Dates: start: 2013

REACTIONS (19)
  - Haemorrhage [Not Recovered/Not Resolved]
  - Headache [Recovered/Resolved]
  - Catarrh [Not Recovered/Not Resolved]
  - Drug ineffective [Not Recovered/Not Resolved]
  - Therapeutic response decreased [Not Recovered/Not Resolved]
  - Product use in unapproved indication [Unknown]
  - Asthma [Not Recovered/Not Resolved]
  - Insomnia [Not Recovered/Not Resolved]
  - Night sweats [Not Recovered/Not Resolved]
  - Foreign body in respiratory tract [Unknown]
  - Cough [Not Recovered/Not Resolved]
  - Injury [Not Recovered/Not Resolved]
  - Dyspnoea [Not Recovered/Not Resolved]
  - Incorrect dose administered [Unknown]
  - Fatigue [Not Recovered/Not Resolved]
  - Bronchiectasis [Recovering/Resolving]
  - Malaise [Unknown]
  - Device malfunction [Unknown]
  - Product availability issue [Unknown]
